FAERS Safety Report 5411652-1 (Version None)
Quarter: 2007Q3

REPORT INFORMATION
  Report Type: 
  Country: None (occurrence: None)
  Receive Date: 20070810
  Receipt Date: 20070731
  Transmission Date: 20080115
  Serious: Yes (Hospitalization, Other)
  Sender: FDA-Public Use
  Company Number: US-PFIZER INC-2007064471

PATIENT
  Sex: Male
  Weight: 126.1 kg

DRUGS (6)
  1. LIPITOR [Suspect]
     Indication: BLOOD CHOLESTEROL INCREASED
     Dates: start: 20050101, end: 20070726
  2. ACETYLSALICYLIC ACID SRT [Concomitant]
  3. ANTIHYPERTENSIVES [Concomitant]
  4. LASIX [Concomitant]
  5. DIURETICS [Concomitant]
  6. ALL OTHER THERAPEUTIC PRODUCTS [Concomitant]

REACTIONS (1)
  - CARDIAC ENZYMES INCREASED [None]
